FAERS Safety Report 9829074 (Version 1)
Quarter: 2014Q1

REPORT INFORMATION
  Report Type: Spontaneous
  Country: HU (occurrence: HU)
  Receive Date: 20140119
  Receipt Date: 20140119
  Transmission Date: 20141002
  Serious: Yes (Hospitalization)
  Sender: FDA-Public Use
  Company Number: US-ASTRAZENECA-2014SE03022

PATIENT
  Age: 4 Month
  Sex: Male

DRUGS (2)
  1. SYNAGIS [Suspect]
     Indication: ANTIVIRAL PROPHYLAXIS
     Dosage: MONTHLY, DOSE WAS GIVEN BASED ON BODY WEIGHT
     Route: 030
     Dates: start: 20131112
  2. SYNAGIS [Suspect]
     Indication: ANTIVIRAL PROPHYLAXIS
     Route: 030
     Dates: start: 20131209

REACTIONS (4)
  - Decreased appetite [Unknown]
  - Somnolence [Unknown]
  - Bronchitis [Unknown]
  - Drug effect decreased [Unknown]
